FAERS Safety Report 8089025-5 (Version None)
Quarter: 2012Q1

REPORT INFORMATION
  Report Type: 
  Country: None (occurrence: None)
  Receive Date: 20120128
  Receipt Date: 20110822
  Transmission Date: 20120608
  Serious: No
  Sender: FDA-Public Use
  Company Number: US-ABBOTT-11P-163-0694771-00

PATIENT
  Age: 62 Year
  Sex: Female

DRUGS (16)
  1. HUMIRA [Suspect]
     Dates: start: 20101218
  2. VITAMIN TAB [Concomitant]
     Indication: MEDICAL DIET
     Route: 048
  3. AMLODIPINE [Concomitant]
     Indication: BLOOD PRESSURE
     Route: 048
  4. NEXIUM [Concomitant]
     Indication: PRODUCT USED FOR UNKNOWN INDICATION
     Route: 048
  5. FLONASE [Concomitant]
     Indication: SINUS HEADACHE
  6. PREMARIN [Concomitant]
     Indication: MENOPAUSE
     Route: 067
  7. DIOVAN HCT [Concomitant]
     Indication: BLOOD PRESSURE
     Route: 048
  8. LOVASTATIN [Concomitant]
     Indication: BLOOD CHOLESTEROL
     Route: 048
  9. IRON SUPPLEMENT [Concomitant]
     Indication: ANAEMIA
     Route: 048
  10. INDAPAMIDE [Concomitant]
     Indication: OEDEMA PERIPHERAL
     Route: 048
  11. ASPIRIN [Concomitant]
     Indication: PROPHYLAXIS
  12. SYNTHROID [Concomitant]
     Indication: THYROID DISORDER
     Route: 048
  13. CYTOMEL [Concomitant]
     Indication: THYROID DISORDER
     Route: 048
  14. ASPIRIN [Concomitant]
     Indication: CARDIAC DISORDER
     Route: 048
  15. HUMIRA [Suspect]
     Indication: PSORIASIS
     Dates: start: 20100911
  16. HUMALOG [Concomitant]
     Indication: DIABETES MELLITUS
     Dosage: 30-40 UNITS SIX TIMES A DAY

REACTIONS (3)
  - LICHEN PLANUS [None]
  - DRUG INEFFECTIVE [None]
  - COLITIS [None]
